FAERS Safety Report 19309848 (Version 1)
Quarter: 2021Q2

REPORT INFORMATION
  Report Type: Report from Study
  Country: US (occurrence: US)
  Receive Date: 20210526
  Receipt Date: 20210526
  Transmission Date: 20210717
  Serious: Yes (Hospitalization)
  Sender: FDA-Public Use
  Company Number: US-EXELIXIS-XL18421040731

PATIENT

DRUGS (2)
  1. CETUXIMAB. [Suspect]
     Active Substance: CETUXIMAB
     Indication: METASTATIC SQUAMOUS CELL CARCINOMA
     Dosage: UNK
     Dates: start: 20210224
  2. XL184 [Suspect]
     Active Substance: CABOZANTINIB
     Indication: METASTATIC SQUAMOUS CELL CARCINOMA
     Dosage: 40 MG
     Dates: start: 20210224

REACTIONS (3)
  - Gastric fistula [Unknown]
  - COVID-19 [Unknown]
  - Abdominal pain [Unknown]

NARRATIVE: CASE EVENT DATE: 20210418
